FAERS Safety Report 16530000 (Version 1)
Quarter: 2019Q3

REPORT INFORMATION
  Report Type: Spontaneous
  Country: ES (occurrence: ES)
  Receive Date: 20190704
  Receipt Date: 20190704
  Transmission Date: 20191004
  Serious: Yes (Other)
  Sender: FDA-Public Use
  Company Number: ES-TEVA-2019-ES-1072897

PATIENT
  Age: 86 Year
  Sex: Male

DRUGS (5)
  1. ATORVASTATIN [Suspect]
     Active Substance: ATORVASTATIN
     Indication: CAROTID ARTERY STENOSIS
     Dosage: 80 MILLIGRAM FOR EVERY 1 DAYS
     Route: 048
     Dates: start: 20180205
  2. EZETIMIBA RATIOPHARM 10 MG COMPRIMIDOS EFG, 28 COMPRIMIDOS [Suspect]
     Active Substance: EZETIMIBE
     Indication: CAROTID ARTERY STENOSIS
     Dosage: 10 MILLIGRAM FOR EVERY1 DAYS
     Route: 048
     Dates: start: 20180205
  3. ESOMEPRAZOL STADA 20 MG COMPRIMIDOS GASTRORRESISTENTES EFG , 28 COMPRI [Suspect]
     Active Substance: ESOMEPRAZOLE MAGNESIUM
     Indication: PROPHYLAXIS
     Dosage: 20 MILLIGRAM FOR EVERY 1 DAY
     Route: 048
     Dates: start: 20180205
  4. CLOPIDOGREL STADA 75 MG COMPRIMIDOS RECUBIERTOS CON PELICULA EFG, 28 C [Suspect]
     Active Substance: CLOPIDOGREL BESILATE
     Indication: CAROTID ARTERY STENOSIS
     Dosage: 75 MILLIGRAM FOR EVERY 1 DAYS
     Route: 048
     Dates: start: 20180205
  5. ELIQUIS [Suspect]
     Active Substance: APIXABAN
     Indication: CAROTID ARTERY STENOSIS
     Dosage: 5 MILLIGRAM FOR EVERY 12 HOURS
     Route: 048
     Dates: start: 20181203

REACTIONS (1)
  - Musculoskeletal pain [Not Recovered/Not Resolved]

NARRATIVE: CASE EVENT DATE: 20190529
